FAERS Safety Report 8799362 (Version 1)
Quarter: 2012Q4

REPORT INFORMATION
  Report Type: Spontaneous
  Country: US (occurrence: None)
  Receive Date: 20120918
  Receipt Date: 20120918
  Transmission Date: 20130627
  Serious: Yes (Death)
  Sender: FDA-Public Use
  Company Number: None

PATIENT
  Age: 67 Year
  Sex: Female
  Weight: 71.6 kg

DRUGS (2)
  1. MELPHALAN [Suspect]
     Indication: MULTIPLE MYELOMA
     Dosage: 298mg 1 dose IV
     Route: 042
     Dates: start: 20120827, end: 20120827
  2. UNSPECIFIED INGREDIENT [Suspect]
     Dosage: 50 cGy b.i.d. x 5 days Other
     Route: 050
     Dates: start: 20120820, end: 20120825

REACTIONS (3)
  - Acute myocardial infarction [None]
  - Oxygen consumption increased [None]
  - General physical health deterioration [None]
